FAERS Safety Report 17467334 (Version 2)
Quarter: 2020Q2

REPORT INFORMATION
  Report Type: Spontaneous
  Country: US (occurrence: US)
  Receive Date: 20200227
  Receipt Date: 20200410
  Transmission Date: 20200713
  Serious: Yes (Hospitalization, Other)
  Sender: FDA-Public Use
  Company Number: US-PFIZER INC-2020084096

PATIENT
  Age: 80 Year
  Sex: Female
  Weight: 51 kg

DRUGS (2)
  1. METHOTREXATE SODIUM. [Suspect]
     Active Substance: METHOTREXATE SODIUM
     Dosage: UNK
     Dates: start: 201209, end: 201301
  2. METHOTREXATE SODIUM. [Suspect]
     Active Substance: METHOTREXATE SODIUM
     Indication: NATURAL KILLER-CELL LEUKAEMIA
     Dosage: UNK
     Dates: end: 2017

REACTIONS (5)
  - Blood count abnormal [Unknown]
  - Rheumatoid arthritis [Unknown]
  - Pneumonia [Recovered/Resolved]
  - Drug ineffective [Not Recovered/Not Resolved]
  - Arthritis [Unknown]

NARRATIVE: CASE EVENT DATE: 201711
